FAERS Safety Report 6831816-X (Version None)
Quarter: 2010Q3

REPORT INFORMATION
  Report Type: 
  Country: None (occurrence: None)
  Receive Date: 20100712
  Receipt Date: 20100629
  Transmission Date: 20110219
  Serious: Yes (Hospitalization, Disabling, Other)
  Sender: FDA-Public Use
  Company Number: US-ELI_LILLY_AND_COMPANY-US201007000516

PATIENT
  Sex: Female

DRUGS (3)
  1. FORTEO [Suspect]
     Indication: OSTEOPOROSIS
     Dosage: 20 UG, DAILY (1/D)
     Dates: start: 20090708
  2. LASIX [Concomitant]
  3. PROZAC [Concomitant]
     Dosage: UNK, AS NEEDED

REACTIONS (4)
  - ARM AMPUTATION [None]
  - DISABILITY [None]
  - JOINT ARTHROPLASTY [None]
  - TRANSPLANT REJECTION [None]
